FAERS Safety Report 24363486 (Version 1)
Quarter: 2024Q3

REPORT INFORMATION
  Report Type: Spontaneous
  Country: FR (occurrence: FR)
  Receive Date: 20240925
  Receipt Date: 20240925
  Transmission Date: 20241017
  Serious: Yes (Hospitalization)
  Sender: RECKITT BENCKISER
  Company Number: None

PATIENT

DRUGS (2)
  1. BUPRENORPHINE [Suspect]
     Active Substance: BUPRENORPHINE
     Indication: Product used for unknown indication
     Dosage: UNK
     Route: 065
  2. METHADONE HYDROCHLORIDE [Suspect]
     Active Substance: METHADONE HYDROCHLORIDE
     Indication: Product used for unknown indication
     Dosage: UNK
     Route: 048
     Dates: start: 2012

REACTIONS (8)
  - Spinal cord infection [Recovering/Resolving]
  - Oesophagitis [Recovering/Resolving]
  - General physical health deterioration [Recovering/Resolving]
  - Intervertebral discitis [Recovering/Resolving]
  - Gastric ulcer [Recovering/Resolving]
  - Endocarditis [Recovering/Resolving]
  - Hepatitis C antibody positive [Not Recovered/Not Resolved]
  - Drug abuse [Not Recovered/Not Resolved]

NARRATIVE: CASE EVENT DATE: 20230501
